FAERS Safety Report 6401157-3 (Version None)
Quarter: 2009Q4

REPORT INFORMATION
  Report Type: 
  Country: None (occurrence: None)
  Receive Date: 20091015
  Receipt Date: 20070405
  Transmission Date: 20100525
  Serious: Yes (Disabling)
  Sender: FDA-Public Use
  Company Number: US-ASTRAZENECA-2006UW10842

PATIENT
  Sex: Male
  Weight: 134.3 kg

DRUGS (11)
  1. SEROQUEL [Suspect]
     Indication: TACHYPHRENIA
     Dosage: 50-100 MG
     Route: 048
     Dates: start: 20040218
  2. SEROQUEL [Suspect]
     Indication: INSOMNIA
     Dosage: 50-100 MG
     Route: 048
     Dates: start: 20040218
  3. ZYPREXA [Suspect]
     Dosage: 2.5-5MG
     Dates: start: 19990224
  4. DEPAKOTE [Concomitant]
     Dosage: 500-1000 MG
     Dates: start: 19990224
  5. AMITRIPTYLINE [Concomitant]
     Dosage: 50 Q.H.S
     Dates: start: 19990428
  6. WELLBUTRIN SR [Concomitant]
     Dosage: 150 Q.A.M
     Dates: start: 20000411
  7. GLUCOPHAGE [Concomitant]
     Route: 048
     Dates: start: 20030711
  8. GLYBURIDE [Concomitant]
     Route: 048
     Dates: start: 20030711
  9. LIPITOR [Concomitant]
     Dosage: 20 A DAY
     Dates: start: 20050629
  10. LISINOPRIL [Concomitant]
     Dosage: 20 A DAY
     Dates: start: 20050629
  11. CELEBREX [Concomitant]
     Dosage: 200 DAILY
     Dates: start: 20050629

REACTIONS (1)
  - ILL-DEFINED DISORDER [None]
